FAERS Safety Report 4399187-9 (Version None)
Quarter: 2004Q2

REPORT INFORMATION
  Report Type: 
  Country: None (occurrence: None)
  Receive Date: 20040621
  Receipt Date: 20040304
  Transmission Date: 20050107
  Serious: Yes (Other)
  Sender: FDA-Public Use
  Company Number: USA-2002-0000555

PATIENT
  Age: 43 Year
  Sex: Female
  Weight: 96.6 kg

DRUGS (38)
  1. OXYCONTIN [Suspect]
     Indication: PAIN
     Dosage: 20 MG, TID
     Dates: start: 19980217
  2. MS CONTIN [Concomitant]
  3. KLONOPIN [Concomitant]
  4. BIAXIN [Concomitant]
  5. BELLERGAL-S [Concomitant]
  6. AQUAPHOR TABLET [Concomitant]
  7. MEGACE [Concomitant]
  8. ADRIAMYCIN PFS [Concomitant]
  9. CYTOXAN [Concomitant]
  10. LORTAB [Concomitant]
  11. LORCET-HD [Concomitant]
  12. ELAVIL [Concomitant]
  13. BUSPAR [Concomitant]
  14. EFFEXOR [Concomitant]
  15. AMBIEN [Concomitant]
  16. SOMA [Concomitant]
  17. NEURONTIN [Concomitant]
  18. REGLAN [Concomitant]
  19. CLONIDINE HCL [Concomitant]
  20. VICOPROFEN [Concomitant]
  21. SPASTRIN (DOES NOT CODE) [Concomitant]
  22. THYROID HORMONES [Concomitant]
  23. NATURAL ESTROGEN AND PROGESTERONE [Concomitant]
  24. CELEXA [Concomitant]
  25. DOXEPIN HCL [Concomitant]
  26. ZANAFLEX [Concomitant]
  27. PREMPRO [Concomitant]
  28. PRILOSEC [Concomitant]
  29. AUGMENTIN '250' [Concomitant]
  30. BACLOFEN [Concomitant]
  31. CLONAZEPAM [Concomitant]
  32. AVELOX [Concomitant]
  33. METHYLPREDNISOLONE [Concomitant]
  34. DURAGEL [Concomitant]
  35. COLACE CAPSULES [Concomitant]
  36. SUDAFED S.A. [Concomitant]
  37. VICODIN [Concomitant]
  38. AMBIEN [Concomitant]

REACTIONS (31)
  - ANXIETY [None]
  - ARTHRALGIA [None]
  - CHEST PAIN [None]
  - COUGH [None]
  - DERMATITIS BULLOUS [None]
  - DRUG ABUSER [None]
  - DRUG DEPENDENCE [None]
  - DYSARTHRIA [None]
  - DYSPNOEA [None]
  - EAR DISORDER [None]
  - ERYTHEMA [None]
  - EXCORIATION [None]
  - FALL [None]
  - FATIGUE [None]
  - FUNGAL INFECTION [None]
  - GAIT DISTURBANCE [None]
  - HOT FLUSH [None]
  - HYPOAESTHESIA [None]
  - HYPOTHYROIDISM [None]
  - MUSCLE SPASMS [None]
  - MUSCULOSKELETAL PAIN [None]
  - NIGHT SWEATS [None]
  - OEDEMA PERIPHERAL [None]
  - PAIN [None]
  - PALPITATIONS [None]
  - PHARYNGITIS [None]
  - PRURITUS [None]
  - SOMNOLENCE [None]
  - TENDERNESS [None]
  - WEIGHT INCREASED [None]
  - WHEEZING [None]
